FAERS Safety Report 10473742 (Version 3)
Quarter: 2015Q1

REPORT INFORMATION
  Report Type: Spontaneous
  Country: FR (occurrence: FR)
  Receive Date: 20140924
  Receipt Date: 20150127
  Transmission Date: 20150720
  Serious: Yes (Death, Hospitalization, Other)
  Sender: FDA-Public Use
  Company Number: FR-BRISTOL-MYERS SQUIBB COMPANY-21419668

PATIENT
  Age: 74 Year
  Sex: Male

DRUGS (9)
  1. MOVICOL [Concomitant]
     Active Substance: POLYETHYLENE GLYCOL 3350\POTASSIUM CHLORIDE\SODIUM BICARBONATE\SODIUM CHLORIDE
  2. OXYNORM [Concomitant]
     Active Substance: OXYCODONE HYDROCHLORIDE
  3. OROCAL [Concomitant]
     Active Substance: CALCIUM CARBONATE
  4. RIVOTRIL [Concomitant]
     Active Substance: CLONAZEPAM
  5. LYRICA [Concomitant]
     Active Substance: PREGABALIN
  6. DENOSUMAB [Concomitant]
     Active Substance: DENOSUMAB
  7. PRIMPERAN [Concomitant]
     Active Substance: METOCLOPRAMIDE HYDROCHLORIDE
  8. OXYCONTIN [Concomitant]
     Active Substance: OXYCODONE HYDROCHLORIDE
  9. YERVOY [Suspect]
     Active Substance: IPILIMUMAB
     Indication: PRODUCT USED FOR UNKNOWN INDICATION
     Dosage: YERVOY 5MG/ML  01-JUL-2014-SECOND CYCLE
     Route: 042
     Dates: start: 20140610, end: 20140701

REACTIONS (3)
  - Malignant neoplasm progression [Fatal]
  - Hepatocellular injury [Recovered/Resolved]
  - Cholestasis [Recovering/Resolving]

NARRATIVE: CASE EVENT DATE: 20140624
